FAERS Safety Report 8107083-6 (Version None)
Quarter: 2012Q1

REPORT INFORMATION
  Report Type: 
  Country: None (occurrence: None)
  Receive Date: 20120202
  Receipt Date: 20120123
  Transmission Date: 20120608
  Serious: Yes (Death)
  Sender: FDA-Public Use
  Company Number: BR-MEDIMMUNE-MEDI-0013537

PATIENT
  Sex: Female
  Weight: 8 kg

DRUGS (3)
  1. CAPTOPRIL [Concomitant]
  2. ACETYLSALICYLIC ACID SRT [Concomitant]
  3. SYNAGIS [Suspect]
     Indication: CARDIAC DISORDER
     Dates: start: 20110601, end: 20110801

REACTIONS (1)
  - SUDDEN DEATH [None]
